FAERS Safety Report 7657475 (Version 4)
Quarter: 2013Q4

REPORT INFORMATION
  Report Type: Spontaneous
  Country: US (occurrence: US)
  Receive Date: 20101105
  Receipt Date: 20131029
  Transmission Date: 20140711
  Serious: Yes (Hospitalization, Other)
  Sender: FDA-Public Use
  Company Number: US-BAYER-201021018NA

PATIENT
  Age: 46 Year
  Sex: Female
  Weight: 86 kg

DRUGS (5)
  1. YAZ [Suspect]
     Indication: PREMENSTRUAL DYSPHORIC DISORDER
     Dosage: UNK
     Route: 048
     Dates: start: 20070405, end: 200710
  2. LIPITOR [Concomitant]
     Indication: HYPERLIPIDAEMIA
     Dosage: 20 MG, UNK
     Route: 048
     Dates: start: 20070111
  3. VITAMIN D3 [Concomitant]
     Dosage: DAILY DOSE 1000 IU
     Route: 048
  4. FISH OIL [Concomitant]
     Dosage: 1000 MG, QD
     Route: 048
  5. MOTRIN [Concomitant]
     Indication: PAIN
     Dosage: 200 MG, BID AS NEEDED
     Route: 048

REACTIONS (5)
  - Cholelithiasis [None]
  - Gallbladder disorder [None]
  - Cholecystitis chronic [None]
  - Pain [None]
  - Anxiety [None]
